FAERS Safety Report 7279739-9 (Version None)
Quarter: 2011Q1

REPORT INFORMATION
  Report Type: 
  Country: None (occurrence: None)
  Receive Date: 20110208
  Receipt Date: 20110202
  Transmission Date: 20110831
  Serious: Yes (Death, Other)
  Sender: FDA-Public Use
  Company Number: PHHY2010JP75021

PATIENT
  Sex: Male
  Weight: 55 kg

DRUGS (8)
  1. EXJADE [Suspect]
     Dosage: 500MG DAILY
     Route: 048
     Dates: start: 20090226, end: 20091222
  2. ALLOPURINOL [Concomitant]
     Indication: MYELODYSPLASTIC SYNDROME
     Dosage: 200MG
     Route: 048
     Dates: start: 20090810, end: 20091222
  3. CRAVIT [Concomitant]
     Indication: MYELODYSPLASTIC SYNDROME
     Dosage: 500MG
     Route: 048
     Dates: start: 20091219, end: 20091221
  4. DIFLUCAN [Suspect]
     Indication: PROPHYLAXIS
     Dosage: 400 MG DAILY
     Route: 048
  5. BAKTAR [Suspect]
     Indication: PROPHYLAXIS
     Dosage: 1DF DAILY
     Route: 048
     Dates: end: 20091222
  6. GLAKAY [Concomitant]
     Indication: MYELODYSPLASTIC SYNDROME
     Dosage: 45MG
     Route: 048
     Dates: end: 20091222
  7. ONEALFA [Concomitant]
     Indication: MYELODYSPLASTIC SYNDROME
     Dosage: 0.5?G
     Route: 048
     Dates: end: 20091222
  8. EXJADE [Suspect]
     Indication: MYELODYSPLASTIC SYNDROME
     Dosage: 500 MG DAILY
     Route: 048
     Dates: start: 20090120, end: 20090131

REACTIONS (8)
  - WHITE BLOOD CELL COUNT INCREASED [None]
  - HYPERURICAEMIA [None]
  - NEOPLASM MALIGNANT [None]
  - PNEUMONIA [None]
  - BLOOD CREATININE INCREASED [None]
  - RASH [None]
  - RENAL DISORDER [None]
  - LIVER DISORDER [None]
